FAERS Safety Report 11716116 (Version 2)
Quarter: 2015Q4

REPORT INFORMATION
  Report Type: Spontaneous
  Country: US (occurrence: US)
  Receive Date: 20151104
  Receipt Date: 20151110
  Transmission Date: 20160304
  Serious: No
  Sender: FDA-Public Use
  Company Number: US-ELI_LILLY_AND_COMPANY-US201106008585

PATIENT
  Age: 65 Year
  Sex: Female

DRUGS (5)
  1. FORTEO [Suspect]
     Active Substance: TERIPARATIDE
     Dosage: 20 UG, QD
  2. FORTEO [Suspect]
     Active Substance: TERIPARATIDE
     Dosage: 20 UG, QD
  3. FORTEO [Suspect]
     Active Substance: TERIPARATIDE
     Dosage: 20 UG, QD
  4. FORTEO [Suspect]
     Active Substance: TERIPARATIDE
     Dosage: 20 UG, QD
  5. FORTEO [Suspect]
     Active Substance: TERIPARATIDE
     Indication: OSTEOPOROSIS
     Dosage: 20 UG, QD
     Dates: start: 201005

REACTIONS (31)
  - Memory impairment [Unknown]
  - Hyperaesthesia [Unknown]
  - Peripheral swelling [Unknown]
  - Nail avulsion [Unknown]
  - Asthenia [Unknown]
  - Depressed level of consciousness [Unknown]
  - Weight increased [Unknown]
  - Insomnia [Unknown]
  - Drug dose omission [Unknown]
  - Dysstasia [Unknown]
  - Upper limb fracture [Recovering/Resolving]
  - Impaired healing [Recovering/Resolving]
  - Eating disorder [Unknown]
  - Dry mouth [Unknown]
  - Pain in extremity [Not Recovered/Not Resolved]
  - Somnolence [Unknown]
  - Depression [Unknown]
  - Amnesia [Unknown]
  - Gait disturbance [Unknown]
  - Fatigue [Unknown]
  - Nail disorder [Unknown]
  - Nausea [Unknown]
  - Contusion [Unknown]
  - Joint stiffness [Unknown]
  - Nail bed tenderness [Unknown]
  - Wrist fracture [Not Recovered/Not Resolved]
  - Injection site haemorrhage [Unknown]
  - Fall [Recovered/Resolved]
  - Koilonychia [Unknown]
  - Dizziness [Unknown]
  - Incorrect product storage [Recovered/Resolved]

NARRATIVE: CASE EVENT DATE: 201111
